FAERS Safety Report 4304232-2 (Version None)
Quarter: 2004Q1

REPORT INFORMATION
  Report Type: 
  Country: None (occurrence: None)
  Receive Date: 20040225
  Receipt Date: 20021014
  Transmission Date: 20041129
  Serious: Yes (Hospitalization, Disabling)
  Sender: FDA-Public Use
  Company Number: WAES 0210AUS00115

PATIENT
  Age: 73 Year
  Sex: Female

DRUGS (7)
  1. ASPIRIN [Concomitant]
  2. CHLOROTHIAZIDE [Concomitant]
  3. DILTIAZEM HYDROCHLORIDE [Suspect]
  4. GEMFIBROZIL [Suspect]
  5. RAMIPRIL [Concomitant]
  6. ROXITHROMYCIN [Suspect]
     Indication: UPPER RESPIRATORY TRACT INFECTION
  7. ZOCOR [Suspect]
     Indication: HYPERCHOLESTEROLAEMIA

REACTIONS (8)
  - BLOOD CREATINE PHOSPHOKINASE INCREASED [None]
  - DRUG INTERACTION [None]
  - MUSCULAR WEAKNESS [None]
  - MYALGIA [None]
  - MYOGLOBINURIA [None]
  - MYOPATHY [None]
  - RHABDOMYOLYSIS [None]
  - UPPER RESPIRATORY TRACT INFECTION [None]
